FAERS Safety Report 5711995-8 (Version None)
Quarter: 2008Q2

REPORT INFORMATION
  Report Type: 
  Country: None (occurrence: None)
  Receive Date: 20080422
  Receipt Date: 20080410
  Transmission Date: 20081010
  Serious: Yes (Hospitalization)
  Sender: FDA-Public Use
  Company Number: MY-RANBAXY-2008R3-14467

PATIENT

DRUGS (12)
  1. CEFADROXIL [Suspect]
     Indication: PYREXIA
     Dosage: 500 MG, UNK
     Route: 048
     Dates: start: 20080329, end: 20080330
  2. CEFADROXIL [Suspect]
     Indication: PHARYNGOLARYNGEAL PAIN
  3. JASIMENTH C [Concomitant]
     Indication: PYREXIA
     Dosage: UNK
     Dates: start: 20080329, end: 20080330
  4. JASIMENTH C [Concomitant]
     Indication: PHARYNGOLARYNGEAL PAIN
  5. BENADRYL [Concomitant]
     Indication: PYREXIA
     Dosage: UNK
     Dates: start: 20080329, end: 20080330
  6. BENADRYL [Concomitant]
     Indication: PHARYNGOLARYNGEAL PAIN
  7. PARACETAMOL [Concomitant]
     Indication: PYREXIA
     Dosage: UNK
     Dates: start: 20080329, end: 20080330
  8. PARACETAMOL [Concomitant]
     Indication: PHARYNGOLARYNGEAL PAIN
  9. PONSTAN [Concomitant]
     Indication: PYREXIA
     Dosage: UNK
     Dates: start: 20080329, end: 20080330
  10. PONSTAN [Concomitant]
     Indication: PHARYNGOLARYNGEAL PAIN
  11. LORATADINE [Concomitant]
     Indication: PYREXIA
     Dosage: UNK
     Dates: start: 20080329, end: 20080330
  12. LORATADINE [Concomitant]
     Indication: PHARYNGOLARYNGEAL PAIN

REACTIONS (4)
  - DYSPNOEA [None]
  - PAIN [None]
  - PHARYNGOLARYNGEAL PAIN [None]
  - PYREXIA [None]
